FAERS Safety Report 4828096-3 (Version None)
Quarter: 2005Q4

REPORT INFORMATION
  Report Type: 
  Country: None (occurrence: None)
  Receive Date: 20051110
  Receipt Date: 20051028
  Transmission Date: 20060501
  Serious: Yes (Hospitalization, Other)
  Sender: FDA-Public Use
  Company Number: 2005148337

PATIENT
  Age: 58 Year
  Sex: Male

DRUGS (1)
  1. VIAGRA [Suspect]
     Indication: ERECTILE DYSFUNCTION
     Dosage: (UNK, AS NECESSARY), ORAL
     Route: 048
     Dates: start: 20051013, end: 20051013

REACTIONS (7)
  - ABDOMINAL PAIN [None]
  - BLINDNESS TRANSIENT [None]
  - CEREBRAL ISCHAEMIA [None]
  - DYSPEPSIA [None]
  - HEADACHE [None]
  - PHOSPHENES [None]
  - VISION BLURRED [None]
